FAERS Safety Report 10020053 (Version 1)
Quarter: 2014Q1

REPORT INFORMATION
  Report Type: Spontaneous
  Country: FR (occurrence: FR)
  Receive Date: 20140318
  Receipt Date: 20140318
  Transmission Date: 20141002
  Serious: Yes (Hospitalization)
  Sender: FDA-Public Use
  Company Number: PHHY2014FR031650

PATIENT
  Age: 68 Year
  Sex: Female

DRUGS (5)
  1. ONBREZ [Suspect]
     Indication: CHRONIC OBSTRUCTIVE PULMONARY DISEASE
     Dosage: 150 MG, QD
     Route: 055
     Dates: start: 201401
  2. AUGMENTIN [Concomitant]
     Indication: LUNG INFECTION
     Dosage: UNK UKN, UNK
     Route: 048
  3. VENTOLINE [Concomitant]
     Dosage: UNK UKN, UNK
  4. PARACETAMOL [Concomitant]
     Dosage: UNK UKN, UNK
  5. FLIXOTIDE [Concomitant]
     Dosage: UNK UKN, UNK

REACTIONS (2)
  - Mania [Not Recovered/Not Resolved]
  - Delirium [Not Recovered/Not Resolved]
